FAERS Safety Report 8480448-9 (Version None)
Quarter: 2012Q3

REPORT INFORMATION
  Report Type: 
  Country: None (occurrence: None)
  Receive Date: 20120702
  Receipt Date: 20120619
  Transmission Date: 20120928
  Serious: Yes (Hospitalization)
  Sender: FDA-Public Use
  Company Number: DE-BIOGENIDEC-2012BI021712

PATIENT
  Age: 53 Year
  Sex: Male

DRUGS (2)
  1. FINGOLIMOD [Concomitant]
     Indication: RELAPSING-REMITTING MULTIPLE SCLEROSIS
  2. TYSABRI [Suspect]
     Indication: RELAPSING-REMITTING MULTIPLE SCLEROSIS
     Dates: start: 20070201, end: 20110721

REACTIONS (1)
  - METASTATIC NEOPLASM [None]
